FAERS Safety Report 23604656 (Version 2)
Quarter: 2024Q1

REPORT INFORMATION
  Report Type: Spontaneous
  Country: US (occurrence: US)
  Receive Date: 20240307
  Receipt Date: 20240307
  Transmission Date: 20240409
  Serious: Yes (Death, Hospitalization)
  Sender: FDA-Public Use
  Company Number: US-STRIDES ARCOLAB LIMITED-2024SP002619

PATIENT

DRUGS (2)
  1. COLCHICINE [Suspect]
     Active Substance: COLCHICINE
     Indication: Abdominal pain
     Dosage: UNK (WHOLE BOTTLE)
     Route: 065
  2. HYDROXYCHLOROQUINE [Concomitant]
     Active Substance: HYDROXYCHLOROQUINE
     Indication: Systemic lupus erythematosus
     Dosage: UNK
     Route: 065

REACTIONS (14)
  - Ventricular fibrillation [Fatal]
  - Cardiac arrest [Fatal]
  - Hyperhidrosis [Fatal]
  - Lethargy [Fatal]
  - Agitation [Fatal]
  - Tachypnoea [Fatal]
  - Hypoxia [Fatal]
  - Metabolic acidosis [Fatal]
  - Diarrhoea [Fatal]
  - Vomiting [Fatal]
  - Nausea [Fatal]
  - Intentional product misuse [Fatal]
  - Intentional overdose [Fatal]
  - Off label use [Unknown]
